FAERS Safety Report 5097063-X (Version None)
Quarter: 2006Q3

REPORT INFORMATION
  Report Type: 
  Country: None (occurrence: None)
  Receive Date: 20060901
  Receipt Date: 20060821
  Transmission Date: 20061208
  Serious: Yes (Death, Life-Threatening, Hospitalization, Other)
  Sender: FDA-Public Use
  Company Number: 2006103153

PATIENT
  Age: 63 Year
  Sex: Female
  Weight: 45 kg

DRUGS (10)
  1. HYDROCORTISONE ACETATE [Suspect]
     Indication: DRUG USE FOR UNKNOWN INDICATION
     Dosage: 300 MG (100 MG, 3 IN 1 D), ORAL
     Route: 048
     Dates: start: 20051208, end: 20060122
  2. PREDNISOLONE [Suspect]
     Indication: DRUG USE FOR UNKNOWN INDICATION
     Dosage: ORAL
     Route: 048
     Dates: start: 20051118, end: 20060122
  3. REMICADE [Suspect]
     Indication: DRUG USE FOR UNKNOWN INDICATION
     Dosage: 225 MG, INTRAVENOUS
     Route: 042
     Dates: start: 20051215, end: 20051215
  4. ATENOLOL [Concomitant]
  5. CALCICHEW-DE (CALCIUM CARBONATE, COLECALCIFEROL) [Concomitant]
  6. ENOXAPARIN SODIUM [Concomitant]
  7. FOSAMAX [Concomitant]
  8. QUININE SULFATE [Concomitant]
  9. POTASSIUM CHLORIDE [Concomitant]
  10. SIMVASTATIN [Concomitant]

REACTIONS (7)
  - ARTHRITIS [None]
  - CATHETER SEPSIS [None]
  - ISCHAEMIC STROKE [None]
  - MALNUTRITION [None]
  - PATHOGEN RESISTANCE [None]
  - PEPTIC ULCER HAEMORRHAGE [None]
  - PNEUMONIA STAPHYLOCOCCAL [None]
